FAERS Safety Report 5020910-4 (Version None)
Quarter: 2006Q2

REPORT INFORMATION
  Report Type: 
  Country: None (occurrence: None)
  Receive Date: 20060414
  Receipt Date: 20050406
  Transmission Date: 20061013
  Serious: Yes (Hospitalization, Other)
  Sender: FDA-Public Use
  Company Number: US-JNJFOC-20050204434

PATIENT
  Sex: Male

DRUGS (2)
  1. ULTRAM [Suspect]
     Indication: PAIN
     Dosage: 1-2 TABLETS DAILY EVERY 6-8 HOURS
  2. SEVERAL MEDICATIONS (ALL OTHER THERAPEUTIC PRODUCTS) [Concomitant]

REACTIONS (1)
  - GRAND MAL CONVULSION [None]
